FAERS Safety Report 17144763 (Version 1)
Quarter: 2019Q4

REPORT INFORMATION
  Report Type: Spontaneous
  Country: US (occurrence: US)
  Receive Date: 20191212
  Receipt Date: 20191212
  Transmission Date: 20200122
  Serious: No
  Sender: FDA-Public Use
  Company Number: US-NOVEN PHARMACEUTICALS, INC.-US2019000277

PATIENT

DRUGS (3)
  1. LOVASTIN [Concomitant]
     Active Substance: LOVASTATIN
     Indication: BLOOD CHOLESTEROL INCREASED
     Dosage: 40 MG, UNK
  2. ESTRADIOL(GP) [Suspect]
     Active Substance: ESTRADIOL
     Indication: NIGHT SWEATS
  3. ESTRADIOL(GP) [Suspect]
     Active Substance: ESTRADIOL
     Indication: HOT FLUSH
     Dosage: UNK, UNKNOWN
     Route: 062
     Dates: start: 20190527

REACTIONS (3)
  - Abdominal distension [Not Recovered/Not Resolved]
  - Back pain [Not Recovered/Not Resolved]
  - Therapeutic product ineffective [Not Recovered/Not Resolved]

NARRATIVE: CASE EVENT DATE: 201905
